FAERS Safety Report 13763359 (Version 3)
Quarter: 2017Q3

REPORT INFORMATION
  Report Type: Report from Study
  Country: US (occurrence: US)
  Receive Date: 20170718
  Receipt Date: 20170818
  Transmission Date: 20171127
  Serious: Yes (Other)
  Sender: FDA-Public Use
  Company Number: US-EMD SERONO-E2B_80071420

PATIENT
  Age: 33 Year
  Sex: Female

DRUGS (5)
  1. REBIF [Suspect]
     Active Substance: INTERFERON BETA-1A
     Route: 058
  2. TOPAMAX [Concomitant]
     Active Substance: TOPIRAMATE
     Indication: HEADACHE
  3. REBIF [Suspect]
     Active Substance: INTERFERON BETA-1A
     Indication: MULTIPLE SCLEROSIS
     Route: 058
     Dates: start: 20170412
  4. REBIF [Suspect]
     Active Substance: INTERFERON BETA-1A
     Route: 058
     Dates: start: 20170712
  5. BACLOFEN. [Concomitant]
     Active Substance: BACLOFEN
     Indication: MUSCLE SPASMS

REACTIONS (13)
  - Vomiting [Recovered/Resolved]
  - Abdominal discomfort [Unknown]
  - Weight decreased [Not Recovered/Not Resolved]
  - Ear infection [Recovering/Resolving]
  - Iron deficiency [Not Recovered/Not Resolved]
  - Hypophagia [Unknown]
  - Constipation [Recovered/Resolved]
  - Injection site bruising [Not Recovered/Not Resolved]
  - Haematemesis [Recovered/Resolved]
  - Haematochezia [Unknown]
  - Nausea [Recovered/Resolved]
  - Hypoaesthesia [Unknown]
  - Chills [Unknown]

NARRATIVE: CASE EVENT DATE: 201704
